FAERS Safety Report 12745412 (Version 5)
Quarter: 2018Q2

REPORT INFORMATION
  Report Type: Spontaneous
  Country: US (occurrence: US)
  Receive Date: 20160915
  Receipt Date: 20180410
  Transmission Date: 20180711
  Serious: No
  Sender: FDA-Public Use
  Company Number: US-PFIZER INC-2016425878

PATIENT
  Age: 12 Year
  Sex: Male
  Weight: 31 kg

DRUGS (5)
  1. GENOTROPIN [Suspect]
     Active Substance: SOMATROPIN
     Dosage: 1.2 MG, UNK (FREQUENCY: HOUR OF SLEEP)
     Route: 058
     Dates: start: 201603
  2. GENOTROPIN [Suspect]
     Active Substance: SOMATROPIN
     Dosage: 12 MG, UNK
  3. GENOTROPIN [Suspect]
     Active Substance: SOMATROPIN
     Dosage: UNK
     Dates: start: 20160112
  4. GENOTROPIN [Suspect]
     Active Substance: SOMATROPIN
     Indication: HYPOPITUITARISM
     Dosage: UNK, 1X/DAY
     Dates: start: 201512
  5. GENOTROPIN [Suspect]
     Active Substance: SOMATROPIN
     Dosage: 1.4 MG, DAILY (ONCE DAILY, EVERY NIGHT)
     Route: 058

REACTIONS (5)
  - Drug dose omission [Unknown]
  - Hypothyroidism [Unknown]
  - Blood glucose increased [Unknown]
  - Vitamin D deficiency [Unknown]
  - Expired device used [Unknown]
